FAERS Safety Report 22652743 (Version 1)
Quarter: 2023Q2

REPORT INFORMATION
  Report Type: Report from Study
  Country: US (occurrence: US)
  Receive Date: 20230629
  Receipt Date: 20230629
  Transmission Date: 20230721
  Serious: Yes (Hospitalization, Disabling, Other)
  Sender: FDA-Public Use
  Company Number: US-APOTEX-2023AP002593

PATIENT
  Age: 52 Year
  Sex: Female
  Weight: 136.05 kg

DRUGS (1)
  1. FLUVOXAMINE [Suspect]
     Active Substance: FLUVOXAMINE
     Indication: COVID-19
     Dosage: 100 MILLIGRAM, QD
     Route: 048
     Dates: start: 20220916

REACTIONS (1)
  - Guillain-Barre syndrome [Not Recovered/Not Resolved]

NARRATIVE: CASE EVENT DATE: 20221212
